FAERS Safety Report 6232728-5 (Version None)
Quarter: 2009Q2

REPORT INFORMATION
  Report Type: 
  Country: None (occurrence: None)
  Receive Date: 20090617
  Receipt Date: 20090605
  Transmission Date: 20091009
  Serious: Yes (Other)
  Sender: FDA-Public Use
  Company Number: US-TYCO HEALTHCARE/MALLINCKRODT-T200901152

PATIENT
  Age: 1 Day

DRUGS (3)
  1. OPTIRAY 350 [Suspect]
     Indication: PULMONARY VALVOTOMY
     Dosage: UNK
  2. GENTAMYCIN-MP [Suspect]
  3. DIURETICS [Suspect]

REACTIONS (1)
  - NEPHROPATHY [None]
